FAERS Safety Report 5176861-8 (Version None)
Quarter: 2006Q4

REPORT INFORMATION
  Report Type: 
  Country: None (occurrence: None)
  Receive Date: 20061218
  Receipt Date: 20030730
  Transmission Date: 20070319
  Serious: Yes (Death, Other)
  Sender: FDA-Public Use
  Company Number: PHHO2003CA09710

PATIENT
  Age: 49 Year
  Sex: Male
  Weight: 135 kg

DRUGS (10)
  1. LORAZEPAM [Suspect]
     Dosage: 2 MG, BID
  2. INSULIN [Concomitant]
  3. SERTRALINE [Concomitant]
     Dosage: 200 MG, UNK
  4. COLACE [Concomitant]
     Dosage: 100 MG, QD
  5. LIPITOR [Concomitant]
     Dosage: 10 MG, QD
  6. RANITIDINE [Concomitant]
     Dosage: 150 MG, BID
  7. CLOZARIL [Suspect]
     Indication: SCHIZOPHRENIA
     Dosage: 50 MG, QD
     Route: 048
     Dates: start: 19980707, end: 20030707
  8. CLOZARIL [Suspect]
     Dosage: 200 MG, QHS
     Route: 048
     Dates: start: 19980707, end: 20030707
  9. CLOZARIL [Suspect]
     Dosage: UNK, UNK
     Route: 048
     Dates: start: 20051107
  10. CLOZARIL [Suspect]
     Dosage: 250 MG, DAILY
     Route: 048
     Dates: end: 20061102

REACTIONS (10)
  - DISEASE PROGRESSION [None]
  - DRUG LEVEL INCREASED [None]
  - ELECTROCARDIOGRAM QT CORRECTED INTERVAL PROLONGED [None]
  - HEPATIC FAILURE [None]
  - HEPATITIS C [None]
  - LIVER FUNCTION TEST ABNORMAL [None]
  - POLYDIPSIA [None]
  - POLYURIA [None]
  - SOMNOLENCE [None]
  - URINARY INCONTINENCE [None]
